FAERS Safety Report 8227414-6 (Version None)
Quarter: 2012Q1

REPORT INFORMATION
  Report Type: 
  Country: None (occurrence: None)
  Receive Date: 20120322
  Receipt Date: 20120302
  Transmission Date: 20120608
  Serious: Yes (Other)
  Sender: FDA-Public Use
  Company Number: ES-AMGEN-ESPSP2012015445

PATIENT
  Age: 69 Year
  Sex: Female
  Weight: 62 kg

DRUGS (6)
  1. ACFOL [Concomitant]
     Dosage: 1 DF, UNK
     Route: 048
  2. ASPIRIN [Concomitant]
     Dosage: 100 MG, 1X/DAY
     Route: 048
  3. DUPHALAC [Concomitant]
     Indication: CONSTIPATION
     Dosage: 1 DF, EVERY 8 HOURS
     Route: 048
  4. ENBREL [Suspect]
     Indication: RHEUMATOID ARTHRITIS
     Dosage: 50 MG, WEEKLY
     Route: 058
     Dates: start: 20040101
  5. PAROXETINE HCL [Concomitant]
     Indication: DEPRESSION
     Dosage: 20 MG, 1X/DAY
     Route: 048
     Dates: start: 20110101
  6. METHOTREXATE [Concomitant]
     Dosage: 2.5 MG, WEEKLY
     Route: 048

REACTIONS (2)
  - RHEUMATOID FACTOR INCREASED [None]
  - INTRAOCULAR PRESSURE INCREASED [None]
